FAERS Safety Report 10005199 (Version 2)
Quarter: 2014Q1

REPORT INFORMATION
  Report Type: Spontaneous
  Country: US (occurrence: US)
  Receive Date: 20140312
  Receipt Date: 20140312
  Transmission Date: 20141002
  Serious: No
  Sender: FDA-Public Use
  Company Number: US-GILEAD-2012-0059108

PATIENT
  Sex: Male

DRUGS (12)
  1. LETAIRIS [Suspect]
     Indication: PULMONARY HYPERTENSION
     Dosage: 10 MG, UNK
     Route: 048
     Dates: start: 20120310
  2. LETAIRIS [Suspect]
     Indication: CREST SYNDROME
  3. LETAIRIS [Suspect]
     Indication: DRUG ABUSE
  4. SYMBICORT [Concomitant]
  5. LEXAPRO [Concomitant]
  6. LISINOPRIL [Concomitant]
  7. OXYCODONE [Concomitant]
  8. CIPROFLOXACIN [Concomitant]
  9. OMEPRAZOLE [Concomitant]
  10. LASIX                              /00032601/ [Concomitant]
  11. POTASSIUM CHLORIDE [Concomitant]
  12. OXYGEN [Concomitant]

REACTIONS (5)
  - Abdominal distension [Unknown]
  - Chest pain [Unknown]
  - Scleroderma [Unknown]
  - Abdominal pain [Unknown]
  - Dyspnoea [Unknown]
